FAERS Safety Report 18765605 (Version 5)
Quarter: 2021Q1

REPORT INFORMATION
  Report Type: Spontaneous
  Country: FR (occurrence: FR)
  Receive Date: 20210120
  Receipt Date: 20210219
  Transmission Date: 20210419
  Serious: Yes (Death)
  Sender: FDA-Public Use
  Company Number: FR-PFIZER INC-2021025066

PATIENT
  Age: 58 Year
  Sex: Male
  Weight: 56 kg

DRUGS (2)
  1. GABAPENTIN. [Suspect]
     Active Substance: GABAPENTIN
     Indication: MIXED ANXIETY AND DEPRESSIVE DISORDER
  2. GABAPENTIN. [Suspect]
     Active Substance: GABAPENTIN
     Indication: NEURALGIA
     Dosage: UNK (1 TABLET OF 800 MG AND 1 CAPSULE OF 100 MG, EACH MORNING, NOON AND EVENING, I,E 2700 MG/DAY)
     Dates: start: 2017

REACTIONS (1)
  - Toxicity to various agents [Fatal]
